FAERS Safety Report 7932177-5 (Version None)
Quarter: 2011Q4

REPORT INFORMATION
  Report Type: 
  Country: None (occurrence: None)
  Receive Date: 20111121
  Receipt Date: 20111116
  Transmission Date: 20120403
  Serious: Yes (Hospitalization, Other)
  Sender: FDA-Public Use
  Company Number: US-AMGEN-USASP2011060379

PATIENT
  Age: 79 Year
  Sex: Male

DRUGS (1)
  1. ENBREL [Suspect]
     Indication: RHEUMATOID ARTHRITIS
     Dosage: 50 MG, QWK
     Dates: start: 20100820

REACTIONS (7)
  - CATARACT [None]
  - CARDIAC PACEMAKER INSERTION [None]
  - INJECTION SITE SWELLING [None]
  - EYE INFECTION [None]
  - TRANSIENT ISCHAEMIC ATTACK [None]
  - INJECTION SITE PAIN [None]
  - INJECTION SITE HAEMATOMA [None]
